FAERS Safety Report 23104460 (Version 1)
Quarter: 2023Q4

REPORT INFORMATION
  Report Type: Report from Study
  Country: CA (occurrence: CA)
  Receive Date: 20231025
  Receipt Date: 20231025
  Transmission Date: 20240110
  Serious: Yes (Other)
  Sender: FDA-Public Use
  Company Number: None

PATIENT
  Sex: Female

DRUGS (20)
  1. HYDROXYCHLOROQUINE [Suspect]
     Active Substance: HYDROXYCHLOROQUINE
     Indication: Product used for unknown indication
     Route: 065
  2. ACTEMRA [Suspect]
     Active Substance: TOCILIZUMAB
     Indication: Vasculitis
     Route: 058
  3. ASPIRIN [Concomitant]
     Active Substance: ASPIRIN
     Route: 065
  4. ALENDRONATE SODIUM [Concomitant]
     Active Substance: ALENDRONATE SODIUM
  5. ALTACE [Concomitant]
     Active Substance: RAMIPRIL
  6. CALCIUM [Concomitant]
     Active Substance: CALCIUM
  7. DAPAGLIFLOZIN PROPANEDIOL MONOH [Concomitant]
  8. DOCUSATE [Concomitant]
     Active Substance: DOCUSATE
  9. FOLIC ACID [Concomitant]
     Active Substance: FOLIC ACID
  10. INSULIN NOS [Concomitant]
     Active Substance: INSULIN NOS
  11. JANUVIA [Concomitant]
     Active Substance: SITAGLIPTIN PHOSPHATE
     Route: 048
  12. MAGNESIUM [Concomitant]
     Active Substance: MAGNESIUM
  13. METHOTREXATE [Concomitant]
     Active Substance: METHOTREXATE
     Route: 048
  14. METOPROLOL [Concomitant]
     Active Substance: METOPROLOL
  15. PREDNISONE [Concomitant]
     Active Substance: PREDNISONE
  16. ROSUVASTATIN [Concomitant]
     Active Substance: ROSUVASTATIN
     Route: 058
  17. VALACYCLOVIR HYDROCHLORIDE [Concomitant]
     Active Substance: VALACYCLOVIR HYDROCHLORIDE
  18. VITAMIN B COMPLEX [Concomitant]
     Active Substance: CYANOCOBALAMIN\DEXPANTHENOL\NIACINAMIDE\PYRIDOXINE HYDROCHLORIDE\RIBOFLAVIN 5^-PHOSPHATE SODIUM\THIA
  19. VITAMIN D [Concomitant]
     Active Substance: VITAMIN D NOS
  20. ZINC [Concomitant]
     Active Substance: PYRITHIONE ZINC\ZINC\ZINC CHLORIDE

REACTIONS (7)
  - Drug dependence [Unknown]
  - General physical health deterioration [Unknown]
  - Arthralgia [Unknown]
  - Drug intolerance [Unknown]
  - Chest discomfort [Unknown]
  - Diabetes mellitus inadequate control [Unknown]
  - Synovitis [Unknown]
